FAERS Safety Report 6679314-0 (Version None)
Quarter: 2010Q2

REPORT INFORMATION
  Report Type: 
  Country: None (occurrence: None)
  Receive Date: 20100408
  Receipt Date: 20090727
  Transmission Date: 20101027
  Serious: No
  Sender: FDA-Public Use
  Company Number: 2009-00462

PATIENT
  Age: 25 Year
  Sex: Male
  Weight: 92.9874 kg

DRUGS (1)
  1. ZICAM COLD REMEDY NASAL GEL [Suspect]
     Indication: NASOPHARYNGITIS
     Dosage: A COUPLE DAYS, ^WEEKS AGO^ - FEW DAYS

REACTIONS (1)
  - ANOSMIA [None]
